FAERS Safety Report 6507096-1 (Version None)
Quarter: 2009Q4

REPORT INFORMATION
  Report Type: 
  Country: None (occurrence: None)
  Receive Date: 20091221
  Receipt Date: 20091209
  Transmission Date: 20100525
  Serious: Yes (Hospitalization)
  Sender: FDA-Public Use
  Company Number: PHHY2009DE43964

PATIENT
  Sex: Female
  Weight: 50 kg

DRUGS (5)
  1. RASILEZ HCT [Suspect]
     Indication: HYPERTENSION
     Dosage: 1 DF, QD
     Dates: start: 20090803, end: 20090831
  2. LERCANIDIPINE [Concomitant]
     Indication: HYPERTENSION
     Dosage: 1 DF, BID
     Dates: start: 20090822
  3. ASPIRIN [Concomitant]
     Dosage: 1 DF, QD
  4. BISOPROLOL [Concomitant]
     Indication: HYPERTENSION
     Dosage: 1 DF, QD
  5. ENALAPRIL [Concomitant]
     Indication: HYPERTENSION
     Dosage: 1 DF, QD

REACTIONS (10)
  - BLOOD PH INCREASED [None]
  - DIARRHOEA [None]
  - ELECTROLYTE IMBALANCE [None]
  - ENTERITIS [None]
  - HYPERVENTILATION [None]
  - HYPOKALAEMIA [None]
  - HYPONATRAEMIA [None]
  - HYPOTENSION [None]
  - SYNCOPE [None]
  - VOMITING [None]
